FAERS Safety Report 9831964 (Version 3)
Quarter: 2014Q1

REPORT INFORMATION
  Report Type: Report from Study
  Country: AU (occurrence: AU)
  Receive Date: 20140121
  Receipt Date: 20140314
  Transmission Date: 20141002
  Serious: Yes (Hospitalization)
  Sender: FDA-Public Use
  Company Number: AU-009507513-1401AUS005272

PATIENT
  Age: 64 Year
  Sex: Male
  Weight: 95 kg

DRUGS (7)
  1. TEMOZOLOMIDE [Suspect]
     Indication: GLIOMA
     Dosage: 160 MG DAILY
     Route: 048
     Dates: start: 20131216, end: 20140110
  2. TEMOZOLOMIDE [Suspect]
     Dosage: UNK
     Route: 048
     Dates: start: 20140113
  3. DEXAMETHASONE [Suspect]
     Indication: HEADACHE
     Dosage: 12 MG DAILY
     Route: 048
     Dates: start: 20131223, end: 20140110
  4. DEXAMETHASONE [Suspect]
     Indication: PHOTOPHOBIA
  5. DILANTIN [Concomitant]
     Indication: CONVULSION PROPHYLAXIS
     Dosage: 360 MG DAILY
     Route: 048
     Dates: start: 20131114
  6. BACTRIM [Concomitant]
     Indication: PROPHYLAXIS
     Dosage: 96 MG DAILY, MON, WED, FRI
     Route: 048
     Dates: start: 20131216
  7. ONDANSETRON HYDROCHLORIDE [Concomitant]
     Indication: PROPHYLAXIS
     Dosage: 8 MG DAILY
     Route: 048
     Dates: start: 20131216

REACTIONS (1)
  - Hypomania [Recovering/Resolving]
